FAERS Safety Report 19862401 (Version 6)
Quarter: 2023Q1

REPORT INFORMATION
  Report Type: Report from Study
  Country: DE (occurrence: None)
  Receive Date: 20210921
  Receipt Date: 20230327
  Transmission Date: 20230417
  Serious: Yes (Hospitalization)
  Sender: FDA-Public Use
  Company Number: DE-ROCHE-2742152

PATIENT
  Age: 62 Year
  Sex: Female
  Weight: 56 kg

DRUGS (14)
  1. ATEZOLIZUMAB [Suspect]
     Active Substance: ATEZOLIZUMAB
     Indication: Malignant neoplasm of unknown primary site
     Dosage: ON 22/DEC/2020, SHE STARTED AND MOST RECENT DOSE OF ATEZOLIZUMAB (1200 MG).
     Route: 041
     Dates: start: 20201222
  2. CARBOPLATIN [Suspect]
     Active Substance: CARBOPLATIN
     Indication: Malignant neoplasm of unknown primary site
     Dosage: ON 30/NOV/2020, RECEIVED LAST DOSE OF INDUCTION CARBOPLATIN PRIOR TO SERIOUS ADVERSE EVENT ONSET?DAT
     Route: 042
     Dates: start: 20201130
  3. CARBOPLATIN [Suspect]
     Active Substance: CARBOPLATIN
     Dosage: ON 22/DEC/2020, RECEIVED LAST DOSE OF TREATMENT DRUG CARBOPLATIN PRIOR TO SERIOUS ADVERSE EVENT ONSE
     Route: 042
     Dates: start: 20201222
  4. PACLITAXEL [Suspect]
     Active Substance: PACLITAXEL
     Indication: Malignant neoplasm of unknown primary site
     Dosage: ON 30/NOV/2020, RECEIVED LAST DOSE OF INDUCTION PACLITAXEL PRIOR TO SERIOUS ADVERSE EVENT ONSET?DATE
     Route: 042
     Dates: start: 20201130
  5. CISPLATIN [Suspect]
     Active Substance: CISPLATIN
     Indication: Malignant neoplasm of unknown primary site
     Dosage: 60-75 MG/M^2
     Route: 042
  6. GEMCITABINE [Suspect]
     Active Substance: GEMCITABINE
     Indication: Malignant neoplasm of unknown primary site
     Route: 042
  7. RAMIPRIL [Concomitant]
     Active Substance: RAMIPRIL
     Route: 048
  8. METOPROLOL [Concomitant]
     Active Substance: METOPROLOL
     Route: 048
  9. METAMIZOL [Concomitant]
     Active Substance: METAMIZOLE SODIUM
     Indication: Pain
     Route: 048
  10. HYGROTON [Concomitant]
     Active Substance: CHLORTHALIDONE
     Route: 048
  11. PREGABALIN [Concomitant]
     Active Substance: PREGABALIN
     Indication: Polyneuropathy
     Route: 048
     Dates: start: 20210113
  12. PREGABALIN [Concomitant]
     Active Substance: PREGABALIN
     Indication: Polyneuropathy
  13. PANTOPRAZOLE [Concomitant]
     Active Substance: PANTOPRAZOLE
     Route: 048
  14. POLYETHYLENE GLYCOLS [Concomitant]
     Active Substance: POLYETHYLENE GLYCOLS
     Route: 048

REACTIONS (1)
  - General physical health deterioration [Recovered/Resolved]

NARRATIVE: CASE EVENT DATE: 20201228
